FAERS Safety Report 25623160 (Version 3)
Quarter: 2025Q3

REPORT INFORMATION
  Report Type: Spontaneous
  Country: CA (occurrence: CA)
  Receive Date: 20250730
  Receipt Date: 20250911
  Transmission Date: 20251021
  Serious: No
  Sender: PFIZER
  Company Number: CA-PFIZER INC-202500054970

PATIENT
  Age: 82 Year
  Sex: Male

DRUGS (3)
  1. VYNDAMAX [Suspect]
     Active Substance: TAFAMIDIS
     Indication: Cardiac amyloidosis
     Dosage: 61 MG, 1X/DAY
     Route: 048
     Dates: start: 20240523
  2. ENTRESTO [Concomitant]
     Active Substance: SACUBITRIL\VALSARTAN
  3. LASIX [Concomitant]
     Active Substance: FUROSEMIDE
     Dosage: 80 MG, AM

REACTIONS (9)
  - Ventricular dysfunction [Recovering/Resolving]
  - Condition aggravated [Recovering/Resolving]
  - Cardiac disorder [Unknown]
  - Disease progression [Unknown]
  - Hypotension [Unknown]
  - Poor prognosis [Unknown]
  - Dizziness postural [Recovering/Resolving]
  - Condition aggravated [Recovering/Resolving]
  - Fall [Unknown]
